FAERS Safety Report 17518714 (Version 4)
Quarter: 2021Q1

REPORT INFORMATION
  Report Type: Other
  Country: US (occurrence: US)
  Receive Date: 20200310
  Receipt Date: 20210211
  Transmission Date: 20210419
  Serious: Yes (Other)
  Sender: FDA-Public Use
  Company Number: US-ROCHE-2546961

PATIENT
  Age: 65 Year
  Sex: Male
  Weight: 88.4 kg

DRUGS (13)
  1. ESCITALOPRAM [Concomitant]
     Active Substance: ESCITALOPRAM OXALATE
  2. GABAPENTIN. [Concomitant]
     Active Substance: GABAPENTIN
     Dosage: 3 CAPSULE EACH DAY
     Route: 048
  3. ACETAMINOPHEN EXTRA STRENGTH [Concomitant]
     Active Substance: ACETAMINOPHEN
     Indication: PAIN
     Dosage: TAKE 2 TABLET EVERY 6 HOURS AS NEEDED
  4. OCREVUS [Suspect]
     Active Substance: OCRELIZUMAB
     Indication: RELAPSING MULTIPLE SCLEROSIS
     Dosage: ONGOING: YES
     Route: 042
  5. CLONAZEPAM. [Concomitant]
     Active Substance: CLONAZEPAM
     Indication: ANXIETY
     Dosage: TAKE HALF TO 1 TABLET EVERY DAY AS NEEDED
     Route: 048
  6. DICLOFENAC SODIUM. [Concomitant]
     Active Substance: DICLOFENAC SODIUM
     Route: 061
  7. BACLOFEN. [Concomitant]
     Active Substance: BACLOFEN
  8. CEPHALEXIN. [Concomitant]
     Active Substance: CEPHALEXIN
     Route: 048
  9. OCREVUS [Suspect]
     Active Substance: OCRELIZUMAB
     Indication: PRIMARY PROGRESSIVE MULTIPLE SCLEROSIS
     Dosage: DATE OF TREATMENT? 16/JAN/2020, 30/JAN/2020
     Route: 042
     Dates: end: 20201130
  10. CLOBETASOL [Concomitant]
     Active Substance: CLOBETASOL
     Route: 061
  11. BUPROPION. [Concomitant]
     Active Substance: BUPROPION
  12. FLUTICASONE PROPIONATE. [Concomitant]
     Active Substance: FLUTICASONE PROPIONATE
     Dosage: 50 MCG/ACT
  13. TAMSULOSIN [Concomitant]
     Active Substance: TAMSULOSIN
     Route: 048

REACTIONS (21)
  - Fatigue [Recovered/Resolved]
  - Nausea [Recovered/Resolved]
  - Limb discomfort [Not Recovered/Not Resolved]
  - JC polyomavirus test positive [Unknown]
  - Clumsiness [Recovered/Resolved]
  - Vision blurred [Recovered/Resolved]
  - Eczema [Not Recovered/Not Resolved]
  - Musculoskeletal chest pain [Not Recovered/Not Resolved]
  - Pulmonary congestion [Recovering/Resolving]
  - Asthenia [Recovering/Resolving]
  - Malaise [Recovering/Resolving]
  - Lethargy [Recovering/Resolving]
  - Balance disorder [Recovered/Resolved]
  - Vomiting [Recovering/Resolving]
  - Skin ulcer [Not Recovered/Not Resolved]
  - Pruritus [Recovering/Resolving]
  - Dehydration [Recovered/Resolved]
  - Balance disorder [Not Recovered/Not Resolved]
  - Urticaria [Recovered/Resolved]
  - Asthenia [Recovered/Resolved]
  - Coordination abnormal [Unknown]

NARRATIVE: CASE EVENT DATE: 2020
